FAERS Safety Report 4340595-X (Version None)
Quarter: 2004Q2

REPORT INFORMATION
  Report Type: 
  Country: None (occurrence: None)
  Receive Date: 20040416
  Receipt Date: 20040416
  Transmission Date: 20050107
  Serious: Yes (Hospitalization)
  Sender: FDA-Public Use
  Company Number: None

PATIENT
  Age: 65 Year
  Sex: Male
  Weight: 76.2497 kg

DRUGS (4)
  1. CISPLATIN [Suspect]
     Indication: TONSIL CANCER
     Dosage: 100MG/M2 IV DAYS 1 2 3 , 13
     Route: 042
     Dates: start: 20040127
  2. CISPLATIN [Suspect]
     Indication: TONSIL CANCER
     Dosage: 100MG/M2 IV DAYS 1 2 3 , 13
     Route: 042
     Dates: start: 20040217
  3. CISPLATIN [Suspect]
     Indication: TONSIL CANCER
     Dosage: 100MG/M2 IV DAYS 1 2 3 , 13
     Route: 042
     Dates: start: 20040311
  4. RADIATION THERAPY [Suspect]
     Indication: TONSIL CANCER
     Dosage: 70GY/25 FRACTIONS /7 WEEKS
     Dates: start: 20040127, end: 20040312

REACTIONS (4)
  - DEHYDRATION [None]
  - NAUSEA [None]
  - PAIN [None]
  - VOMITING [None]
